FAERS Safety Report 8232638-8 (Version None)
Quarter: 2012Q1

REPORT INFORMATION
  Report Type: 
  Country: None (occurrence: None)
  Receive Date: 20120323
  Receipt Date: 20120221
  Transmission Date: 20120608
  Serious: No
  Sender: FDA-Public Use
  Company Number: US-BAYER-2012-018334

PATIENT
  Sex: Female
  Weight: 20 kg

DRUGS (3)
  1. RID MOUSSE [Suspect]
     Dosage: 1 U, ONCE
     Dates: start: 20120215, end: 20120215
  2. RID MOUSSE [Suspect]
     Indication: LICE INFESTATION
     Dosage: UNK
     Route: 061
     Dates: start: 20120206, end: 20120206
  3. RID MOUSSE [Suspect]
     Dosage: 1 U, UNK
     Route: 061
     Dates: start: 20120206, end: 20120215

REACTIONS (1)
  - LICE INFESTATION [None]
